FAERS Safety Report 24536851 (Version 1)
Quarter: 2024Q4

REPORT INFORMATION
  Report Type: Spontaneous
  Country: US (occurrence: US)
  Receive Date: 20241022
  Receipt Date: 20241022
  Transmission Date: 20250115
  Serious: No
  Sender: SANOFI AVENTIS
  Company Number: US-SA-2024SA301197

PATIENT
  Sex: Male
  Weight: 72.562 kg

DRUGS (2)
  1. DUPIXENT [Suspect]
     Active Substance: DUPILUMAB
     Indication: Illness
     Dosage: 300 MG, QOW
     Route: 058
  2. TESTOSTERONE [Concomitant]
     Active Substance: TESTOSTERONE

REACTIONS (2)
  - Movement disorder [Unknown]
  - Musculoskeletal discomfort [Unknown]
